FAERS Safety Report 15009935 (Version 1)
Quarter: 2018Q2

REPORT INFORMATION
  Report Type: Spontaneous
  Country: DK (occurrence: DK)
  Receive Date: 20180614
  Receipt Date: 20180614
  Transmission Date: 20180711
  Serious: Yes (Life-Threatening, Hospitalization, Other)
  Sender: FDA-Public Use
  Company Number: DK-INVENTIA-000232

PATIENT
  Age: 54 Year
  Sex: Male
  Weight: 66 kg

DRUGS (1)
  1. METFORMIN [Suspect]
     Active Substance: METFORMIN HYDROCHLORIDE

REACTIONS (13)
  - Vomiting [Recovering/Resolving]
  - Cardiovascular disorder [Recovering/Resolving]
  - Hypothermia [Recovering/Resolving]
  - Toxicity to various agents [Unknown]
  - Suicide attempt [Unknown]
  - Arrhythmia [Recovering/Resolving]
  - Polyneuropathy [Recovering/Resolving]
  - Haemodynamic instability [Recovering/Resolving]
  - Lactic acidosis [Recovering/Resolving]
  - Intentional overdose [Unknown]
  - Hypoglycaemia [Recovering/Resolving]
  - Acute kidney injury [Recovering/Resolving]
  - Diarrhoea [Recovering/Resolving]
